FAERS Safety Report 13427107 (Version 1)
Quarter: 2017Q2

REPORT INFORMATION
  Report Type: Spontaneous
  Country: US (occurrence: US)
  Receive Date: 20170411
  Receipt Date: 20170411
  Transmission Date: 20170830
  Serious: Yes (Hospitalization, Other)
  Sender: FDA-Public Use
  Company Number: None

PATIENT
  Age: 86 Year
  Sex: Female
  Weight: 90 kg

DRUGS (8)
  1. MULTIVITAMIN [Concomitant]
     Active Substance: VITAMINS
  2. VORICONAZOLE. [Suspect]
     Active Substance: VORICONAZOLE
     Indication: MENINGITIS FUNGAL
     Dosage: ?          QUANTITY:2 TABLET(S);?
     Route: 048
     Dates: start: 20121006, end: 20131010
  3. PROBIOTIC [Concomitant]
     Active Substance: PROBIOTICS NOS
  4. COREG [Concomitant]
     Active Substance: CARVEDILOL
  5. NOVOLIN [Concomitant]
     Active Substance: INSULIN HUMAN
  6. FERROUS SULFATE. [Concomitant]
     Active Substance: FERROUS SULFATE
  7. MAGNESIUM OXIDE. [Concomitant]
     Active Substance: MAGNESIUM OXIDE
  8. ASPIRIN. [Concomitant]
     Active Substance: ASPIRIN

REACTIONS (7)
  - Facial bones fracture [None]
  - Femur fracture [None]
  - Fibula fracture [None]
  - Hypotension [None]
  - Osteogenesis imperfecta [None]
  - Fall [None]
  - Blood glucose increased [None]

NARRATIVE: CASE EVENT DATE: 20130429
